FAERS Safety Report 8733835 (Version 2)
Quarter: 2012Q4

REPORT INFORMATION
  Report Type: Report from Study
  Country: FR (occurrence: FR)
  Receive Date: 20120821
  Receipt Date: 20120927
  Transmission Date: 20130627
  Serious: Yes (Hospitalization)
  Sender: FDA-Public Use
  Company Number: PHHO2012FR012077

PATIENT
  Age: 76 Year
  Sex: Male
  Weight: 85 kg

DRUGS (6)
  1. AMN107 [Suspect]
     Indication: MALIGNANT MELANOMA
     Dosage: 800 mg, daily
     Route: 048
     Dates: start: 20120126, end: 20120806
  2. TAHOR [Concomitant]
     Indication: HYPERCHOLESTEROLAEMIA
     Dosage: 10 mg, daily
     Route: 048
     Dates: start: 2002
  3. ETIOVEN [Concomitant]
     Indication: VENOUS INSUFFICIENCY
     Dosage: 30 mg, daily
     Route: 048
     Dates: start: 2009
  4. PERMIXON [Concomitant]
     Indication: BENIGN PROSTATIC HYPERPLASIA
     Dosage: 320 mg, daily
     Route: 048
     Dates: start: 2007, end: 20120729
  5. OGASTRO [Concomitant]
     Indication: DYSPEPSIA
     Dosage: 15 mg, UNK
     Route: 048
     Dates: start: 2010
  6. METEOSPASMYL [Concomitant]
     Indication: DYSPEPSIA
     Dosage: UNK
     Route: 048

REACTIONS (1)
  - Benign prostatic hyperplasia [Recovered/Resolved]
